FAERS Safety Report 7216572-8 (Version None)
Quarter: 2011Q1

REPORT INFORMATION
  Report Type: 
  Country: None (occurrence: None)
  Receive Date: 20110110
  Receipt Date: 20101227
  Transmission Date: 20110831
  Serious: Yes (Hospitalization)
  Sender: FDA-Public Use
  Company Number: US-BIOGENIDEC-2010BI044819

PATIENT
  Age: 43 Year
  Sex: Female
  Weight: 49 kg

DRUGS (26)
  1. OMEPRAZOLE [Concomitant]
  2. MACROBID [Concomitant]
     Indication: PROPHYLAXIS URINARY TRACT INFECTION
  3. MORPHINE [Concomitant]
  4. MILK OF MAGNESIA [Concomitant]
  5. DONEPEZIL HCL [Concomitant]
  6. INFLUENZA VACCINE [Concomitant]
  7. SODIUM PHOSPHATE [Concomitant]
  8. DULOXETIME HYDROCHLORIDE [Concomitant]
     Indication: PAIN
  9. BACLOFEN [Concomitant]
     Route: 048
  10. ACETAMINOPHEN [Concomitant]
     Indication: BREAKTHROUGH PAIN
  11. PROCALAMINE [Concomitant]
  12. FENTANYL [Concomitant]
     Route: 062
  13. DULCOLAX [Concomitant]
     Route: 054
  14. TYSABRI [Suspect]
     Indication: MULTIPLE SCLEROSIS
     Route: 042
     Dates: start: 20070830, end: 20100810
  15. COLACE [Concomitant]
  16. HYDROCODONE [Concomitant]
     Indication: BREAKTHROUGH PAIN
  17. ACETAMINOPHEN [Concomitant]
  18. NICOTINE [Concomitant]
     Route: 062
  19. LOVENOX [Concomitant]
     Route: 058
  20. FENTANYL [Concomitant]
     Route: 042
  21. MAGNESIUM SULFATE [Concomitant]
  22. SODIUM PHOSPHATE [Concomitant]
     Route: 054
  23. FENTANYL [Concomitant]
     Route: 062
  24. DULOXETIME HYDROCHLORIDE [Concomitant]
     Indication: DEPRESSION
  25. CALCIUM GLUCONATE [Concomitant]
  26. POTASSIUM CHLORIDE [Concomitant]

REACTIONS (5)
  - GRAND MAL CONVULSION [None]
  - PAIN IN EXTREMITY [None]
  - PROGRESSIVE MULTIFOCAL LEUKOENCEPHALOPATHY [None]
  - FALL [None]
  - URINARY TRACT INFECTION [None]
